FAERS Safety Report 6014816-1 (Version None)
Quarter: 2008Q4

REPORT INFORMATION
  Report Type: 
  Country: None (occurrence: None)
  Receive Date: 20081219
  Receipt Date: 20081205
  Transmission Date: 20090506
  Serious: Yes (Hospitalization)
  Sender: FDA-Public Use
  Company Number: HU-PFIZER INC-2008152156

PATIENT

DRUGS (7)
  1. BLINDED *PLACEBO [Suspect]
     Indication: PULMONARY HYPERTENSION
     Dosage: UNK
     Route: 048
     Dates: start: 20061025
  2. SILDENAFIL CITRATE [Suspect]
     Indication: PULMONARY HYPERTENSION
     Dosage: UNK
     Route: 048
     Dates: start: 20061025
  3. CAPTOPRIL [Concomitant]
     Dosage: UNK
     Route: 048
     Dates: start: 20060426
  4. ACETYLSALICYLIC ACID [Concomitant]
     Dosage: UNK
     Route: 048
     Dates: start: 20060411
  5. ASPARTATE POTASSIUM [Concomitant]
     Dosage: UNK
     Route: 048
     Dates: start: 20060503
  6. BUTAMIRATE [Concomitant]
     Dosage: UNK
     Route: 048
     Dates: start: 20070628
  7. CEFPROZIL [Concomitant]
     Dosage: UNK
     Route: 048
     Dates: start: 20070703

REACTIONS (1)
  - HAEMOGLOBIN INCREASED [None]
